FAERS Safety Report 4784779-5 (Version None)
Quarter: 2005Q3

REPORT INFORMATION
  Report Type: 
  Country: None (occurrence: None)
  Receive Date: 20050929
  Receipt Date: 20050929
  Transmission Date: 20060218
  Serious: Yes (Hospitalization)
  Sender: FDA-Public Use
  Company Number: None

PATIENT
  Age: 4 Year
  Sex: Female
  Weight: 15.7 kg

DRUGS (2)
  1. PHENAZOPYRIDIUM 95MG WAL-GREENS [Suspect]
     Indication: URINARY TRACT INFECTION
     Dosage: 95MG 2 TABLETS PO
     Route: 048
     Dates: start: 20050826, end: 20050827
  2. AMOXICILLIN [Concomitant]

REACTIONS (4)
  - CYANOSIS [None]
  - METHAEMOGLOBINAEMIA [None]
  - PYREXIA [None]
  - VOMITING [None]
